FAERS Safety Report 20110610 (Version 2)
Quarter: 2021Q4

REPORT INFORMATION
  Report Type: Report from Study
  Country: US (occurrence: US)
  Receive Date: 20211124
  Receipt Date: 20211201
  Transmission Date: 20220303
  Serious: Yes (Hospitalization)
  Sender: FDA-Public Use
  Company Number: None

PATIENT

DRUGS (16)
  1. PEGASPARGASE [Suspect]
     Active Substance: PEGASPARGASE
     Indication: B precursor type acute leukaemia
     Dosage: 5375 IU, ONE DOSE
     Route: 042
     Dates: start: 20190218, end: 20191027
  2. PEGASPARGASE [Suspect]
     Active Substance: PEGASPARGASE
     Dosage: UNK
     Route: 042
     Dates: start: 20191029, end: 20191118
  3. PEGASPARGASE [Suspect]
     Active Substance: PEGASPARGASE
     Dosage: UNK
     Route: 042
     Dates: start: 20191126
  4. RUXOLITINIB PHOSPHATE [Suspect]
     Active Substance: RUXOLITINIB PHOSPHATE
     Indication: B precursor type acute leukaemia
     Dosage: 110 MG, QD
     Route: 048
     Dates: start: 20190218, end: 20191027
  5. RUXOLITINIB PHOSPHATE [Suspect]
     Active Substance: RUXOLITINIB PHOSPHATE
     Dosage: 110 MG, BID
     Route: 048
     Dates: start: 20191029, end: 20191118
  6. RUXOLITINIB PHOSPHATE [Suspect]
     Active Substance: RUXOLITINIB PHOSPHATE
     Dosage: 110 MG, BID
     Route: 048
     Dates: start: 20191126
  7. CYTARABINE [Suspect]
     Active Substance: CYTARABINE
     Indication: B precursor type acute leukaemia
     Dosage: 157 MG, QD
     Route: 042
     Dates: start: 20190218, end: 20190221
  8. CYTARABINE [Suspect]
     Active Substance: CYTARABINE
     Dosage: 157 MG, QD
     Route: 042
     Dates: start: 20190225, end: 20190228
  9. MERCAPTOPURINE [Suspect]
     Active Substance: MERCAPTOPURINE
     Indication: B precursor type acute leukaemia
     Dosage: 75 MG, QD
     Route: 048
     Dates: start: 20190218, end: 20190303
  10. METHOTREXATE [Suspect]
     Active Substance: METHOTREXATE
     Indication: B precursor type acute leukaemia
     Dosage: 15 MG, ONE DOSE
     Route: 037
     Dates: start: 20190218, end: 20191027
  11. METHOTREXATE [Suspect]
     Active Substance: METHOTREXATE
     Dosage: UNK
     Route: 037
     Dates: start: 20191029, end: 20191118
  12. METHOTREXATE [Suspect]
     Active Substance: METHOTREXATE
     Dosage: UNK
     Route: 037
     Dates: start: 20191126
  13. VINCRISTINE [Suspect]
     Active Substance: VINCRISTINE
     Indication: B precursor type acute leukaemia
     Dosage: 2 MG, QD
     Route: 042
     Dates: start: 20190218, end: 20191027
  14. VINCRISTINE [Suspect]
     Active Substance: VINCRISTINE
     Dosage: UNK
     Route: 042
     Dates: start: 20191029, end: 20191118
  15. VINCRISTINE [Suspect]
     Active Substance: VINCRISTINE
     Dosage: UNK
     Route: 042
     Dates: start: 20191126
  16. CYCLOPHOSPHAMIDE [Suspect]
     Active Substance: CYCLOPHOSPHAMIDE
     Indication: B-cell type acute leukaemia
     Dosage: 2090 MG
     Route: 042
     Dates: start: 20190218

REACTIONS (5)
  - Febrile neutropenia [Recovered/Resolved]
  - Febrile neutropenia [Unknown]
  - Nausea [Recovering/Resolving]
  - Anaemia [Recovering/Resolving]
  - Platelet count decreased [Recovering/Resolving]

NARRATIVE: CASE EVENT DATE: 20190311
